FAERS Safety Report 14272566 (Version 2)
Quarter: 2018Q1

REPORT INFORMATION
  Report Type: Report from Study
  Country: US (occurrence: US)
  Receive Date: 20171211
  Receipt Date: 20180312
  Transmission Date: 20180508
  Serious: Yes (Hospitalization)
  Sender: FDA-Public Use
  Company Number: PHEH2017US038919

PATIENT
  Sex: Female

DRUGS (1)
  1. COSENTYX [Suspect]
     Active Substance: SECUKINUMAB
     Indication: PSORIASIS
     Dosage: 300 MG, QW
     Route: 058
     Dates: start: 20171008

REACTIONS (4)
  - Subcutaneous abscess [Unknown]
  - Peripheral swelling [Recovering/Resolving]
  - Cellulitis staphylococcal [Unknown]
  - Erythema [Recovering/Resolving]
